FAERS Safety Report 14842468 (Version 3)
Quarter: 2018Q3

REPORT INFORMATION
  Report Type: Report from Study
  Country: PL (occurrence: PL)
  Receive Date: 20180503
  Receipt Date: 20180702
  Transmission Date: 20181010
  Serious: Yes (Death, Hospitalization)
  Sender: FDA-Public Use
  Company Number: PL-CELGENEUS-POL-20180407004

PATIENT
  Age: 53 Year
  Sex: Female
  Weight: 48 kg

DRUGS (27)
  1. CALCIUM [Concomitant]
     Active Substance: CALCIUM
     Indication: PRODUCT USED FOR UNKNOWN INDICATION
     Route: 065
     Dates: start: 20180321
  2. TRAMAL [Concomitant]
     Active Substance: TRAMADOL
     Indication: PELVIC PAIN
     Route: 065
  3. GRANUFLEX [Concomitant]
     Indication: DECUBITUS ULCER
     Route: 065
  4. GRANUFLEX [Concomitant]
     Indication: BACK PAIN
  5. ZDROVIT LACIUM [Concomitant]
     Indication: BACK PAIN
  6. NASEN [Concomitant]
     Indication: ANXIETY
     Route: 065
  7. NACL [Concomitant]
     Active Substance: SODIUM CHLORIDE
     Indication: FLUID REPLACEMENT
     Route: 065
  8. ABRAXANE [Suspect]
     Active Substance: PACLITAXEL
     Indication: TRIPLE NEGATIVE BREAST CANCER
     Dosage: 100 MILLIGRAM/SQ. METER
     Route: 041
     Dates: start: 20180321, end: 20180404
  9. MELOXICAM. [Concomitant]
     Active Substance: MELOXICAM
     Indication: PRODUCT USED FOR UNKNOWN INDICATION
     Route: 065
     Dates: start: 201801
  10. CLEXANE [Concomitant]
     Active Substance: ENOXAPARIN SODIUM
     Indication: PROPHYLAXIS
     Route: 065
  11. DEXTROSE. [Concomitant]
     Active Substance: DEXTROSE
     Indication: FLUID REPLACEMENT
     Route: 065
  12. NACL [Concomitant]
     Active Substance: SODIUM CHLORIDE
     Indication: BACK PAIN
  13. MK?3475 [Suspect]
     Active Substance: PEMBROLIZUMAB
     Indication: TRIPLE NEGATIVE BREAST CANCER
     Dosage: 200 MILLIGRAM
     Route: 041
     Dates: start: 20180321, end: 20180321
  14. ACETAMINOPHEN. [Concomitant]
     Active Substance: ACETAMINOPHEN
     Indication: PYREXIA
     Route: 065
  15. ZDROVIT LACIUM [Concomitant]
     Indication: PROPHYLAXIS
     Route: 065
  16. CALCIUM CHLORIDE. [Concomitant]
     Active Substance: CALCIUM CHLORIDE
     Indication: BACK PAIN
  17. PALEXIA [Concomitant]
     Active Substance: TAPENTADOL HYDROCHLORIDE
     Indication: PRODUCT USED FOR UNKNOWN INDICATION
     Route: 065
     Dates: start: 20180321, end: 20180409
  18. ZOLEDRONIC ACID [Concomitant]
     Active Substance: ZOLEDRONIC ACID
     Indication: PRODUCT USED FOR UNKNOWN INDICATION
     Route: 065
     Dates: start: 20180321
  19. NIMESIL [Concomitant]
     Active Substance: NIMESULIDE
     Indication: PRODUCT USED FOR UNKNOWN INDICATION
     Route: 048
     Dates: start: 20180321, end: 20180409
  20. NUTRIDRINK [Concomitant]
     Active Substance: CARBOHYDRATES\FATTY ACIDS\MINERALS\PROTEIN\VITAMINS
     Indication: WEIGHT DECREASED
     Route: 065
  21. OXYCONTIN [Concomitant]
     Active Substance: OXYCODONE HYDROCHLORIDE
     Indication: PAIN
     Route: 065
  22. CALCIUM CHLORIDE. [Concomitant]
     Active Substance: CALCIUM CHLORIDE
     Indication: FLUID REPLACEMENT
     Route: 065
  23. TRAMAL [Concomitant]
     Active Substance: TRAMADOL
     Indication: BACK PAIN
  24. METOCLOPRAMIDE. [Concomitant]
     Active Substance: METOCLOPRAMIDE
     Indication: PROPHYLAXIS
     Route: 065
  25. OXYCONTIN [Concomitant]
     Active Substance: OXYCODONE HYDROCHLORIDE
     Indication: BACK PAIN
  26. NASEN [Concomitant]
     Indication: BACK PAIN
  27. DEXTROSE. [Concomitant]
     Active Substance: DEXTROSE
     Indication: BACK PAIN

REACTIONS (1)
  - Pneumonia [Fatal]

NARRATIVE: CASE EVENT DATE: 20180404
